FAERS Safety Report 16877025 (Version 1)
Quarter: 2019Q4

REPORT INFORMATION
  Report Type: Spontaneous
  Country: FR (occurrence: FR)
  Receive Date: 20191002
  Receipt Date: 20191002
  Transmission Date: 20200122
  Serious: Yes (Death)
  Sender: FDA-Public Use
  Company Number: FR-ASTRAZENECA-2019SF38975

PATIENT
  Age: 71 Year
  Sex: Female

DRUGS (2)
  1. FASENRA [Suspect]
     Active Substance: BENRALIZUMAB
     Indication: ASTHMA
     Route: 058
  2. OXYGEN THERAPY [Concomitant]
     Active Substance: OXYGEN

REACTIONS (1)
  - Death [Fatal]

NARRATIVE: CASE EVENT DATE: 201908
